FAERS Safety Report 5392528-5 (Version None)
Quarter: 2007Q3

REPORT INFORMATION
  Report Type: 
  Country: None (occurrence: None)
  Receive Date: 20070720
  Receipt Date: 20070709
  Transmission Date: 20080115
  Serious: Yes (Hospitalization)
  Sender: FDA-Public Use
  Company Number: JP-ELI_LILLY_AND_COMPANY-JP200705007604

PATIENT
  Age: 8 Year
  Sex: Male
  Weight: 23.9 kg

DRUGS (12)
  1. ATOMOXETINE HYDROCHLORIDE [Suspect]
     Indication: ATTENTION DEFICIT/HYPERACTIVITY DISORDER
     Dosage: 10 MG, DAILY (1/D)
     Route: 048
     Dates: start: 20051122, end: 20061205
  2. ATOMOXETINE HYDROCHLORIDE [Suspect]
     Dosage: 20 MG, DAILY (1/D)
     Route: 048
     Dates: start: 20051206, end: 20060116
  3. ATOMOXETINE HYDROCHLORIDE [Suspect]
     Dosage: 30 MG, DAILY (1/D)
     Route: 048
     Dates: start: 20060117, end: 20070423
  4. ATOMOXETINE HYDROCHLORIDE [Suspect]
     Dosage: 40 MG, DAILY (1/D)
     Route: 048
     Dates: start: 20070424, end: 20070530
  5. ONON [Concomitant]
     Indication: ASTHMA
     Dosage: 0.8 G, DAILY (1/D)
     Route: 048
     Dates: start: 20041210, end: 20070530
  6. ZADITEN [Concomitant]
     Indication: ASTHMA
     Dosage: 1.4 G, DAILY (1/D)
     Route: 048
     Dates: start: 20021121, end: 20070530
  7. RINDERON -V [Concomitant]
     Indication: DERMATITIS ATOPIC
     Dosage: UNK, UNK
     Route: 061
     Dates: start: 20061215
  8. FLUNASE [Concomitant]
     Indication: RHINITIS ALLERGIC
     Dosage: UNK, UNK
     Route: 045
     Dates: start: 20040910
  9. WIDECILLIN [Concomitant]
     Indication: PYREXIA
     Dosage: UNK, UNK
     Route: 048
     Dates: start: 20070528, end: 20070529
  10. MUCODYNE [Concomitant]
     Indication: PYREXIA
     Dosage: UNK, UNK
     Route: 048
     Dates: start: 20070528, end: 20070529
  11. HIRUDOID /00723701/ [Concomitant]
     Indication: DERMATITIS ATOPIC
     Dosage: UNK, UNK
     Route: 061
     Dates: start: 20060421
  12. LOCOID [Concomitant]
     Indication: DERMATITIS ATOPIC
     Route: 061
     Dates: start: 20061117

REACTIONS (2)
  - GASTROENTERITIS [None]
  - HEPATIC FUNCTION ABNORMAL [None]
